FAERS Safety Report 17070316 (Version 1)
Quarter: 2019Q4

REPORT INFORMATION
  Report Type: Spontaneous
  Country: US (occurrence: US)
  Receive Date: 20191125
  Receipt Date: 20191125
  Transmission Date: 20200122
  Serious: Yes (Life-Threatening, Hospitalization)
  Sender: FDA-Public Use
  Company Number: US-STRIDES ARCOLAB LIMITED-2019SP011569

PATIENT
  Age: 45 Year
  Sex: Female

DRUGS (2)
  1. HYDRALAZINE HCL [Suspect]
     Active Substance: HYDRALAZINE HYDROCHLORIDE
     Indication: HYPERTENSION
     Dosage: UNK
     Route: 065
  2. HYDRALAZINE HCL [Suspect]
     Active Substance: HYDRALAZINE HYDROCHLORIDE
     Dosage: 100 MILLIGRAM, TID (INCREASED OVER LAST 4 YEARS)
     Route: 065

REACTIONS (10)
  - Aortic dissection [Unknown]
  - Anti-neutrophil cytoplasmic antibody positive vasculitis [Unknown]
  - Lung opacity [Unknown]
  - Glomerulonephritis rapidly progressive [Recovered/Resolved]
  - Nausea [Unknown]
  - Chest pain [Unknown]
  - Pain [Unknown]
  - Pulmonary alveolar haemorrhage [Recovered/Resolved]
  - Hypoxia [Unknown]
  - Acute kidney injury [Recovered/Resolved]
